FAERS Safety Report 14154527 (Version 7)
Quarter: 2019Q3

REPORT INFORMATION
  Report Type: Report from Study
  Country: US (occurrence: US)
  Receive Date: 20171102
  Receipt Date: 20190816
  Transmission Date: 20191004
  Serious: Yes (Hospitalization)
  Sender: FDA-Public Use
  Company Number: US-ACTELION-A-NJ2017-158827

PATIENT
  Age: 58 Year
  Sex: Female
  Weight: 99.32 kg

DRUGS (15)
  1. OPSUMIT [Suspect]
     Active Substance: MACITENTAN
     Indication: PULMONARY ARTERIAL HYPERTENSION
     Dosage: 10 MG, QD
     Route: 048
     Dates: start: 20160712
  2. CEFAZOLIN [Concomitant]
     Active Substance: CEFAZOLIN
  3. HYDROMORPHONE [Concomitant]
     Active Substance: HYDROMORPHONE
  4. POLYETHYLENE GLYCOL [Concomitant]
     Active Substance: POLYETHYLENE GLYCOLS
  5. ACETAMINOPHEN. [Concomitant]
     Active Substance: ACETAMINOPHEN
  6. BUPIVACAINE. [Concomitant]
     Active Substance: BUPIVACAINE
  7. ENOXAPARIN [Concomitant]
     Active Substance: ENOXAPARIN
  8. MULTI VITAMIN [Concomitant]
     Active Substance: VITAMINS
  9. SILDENAFIL CITRATE. [Concomitant]
     Active Substance: SILDENAFIL CITRATE
  10. VELETRI [Suspect]
     Active Substance: EPOPROSTENOL
     Indication: PULMONARY ARTERIAL HYPERTENSION
     Dosage: 26 NG/KG, PER MIN
     Route: 042
  11. FENTANYL. [Concomitant]
     Active Substance: FENTANYL
  12. VELETRI [Suspect]
     Active Substance: EPOPROSTENOL
     Dosage: 20 NG/KG, PER MIN
     Route: 042
  13. PANTOPRAZOLE [Concomitant]
     Active Substance: PANTOPRAZOLE
  14. GABAPENTIN. [Concomitant]
     Active Substance: GABAPENTIN
  15. ONDANSETRON [Concomitant]
     Active Substance: ONDANSETRON

REACTIONS (20)
  - Respiratory tract infection [Unknown]
  - Nausea [Unknown]
  - Pain in jaw [Unknown]
  - Rash erythematous [Unknown]
  - Biliary colic [Recovered/Resolved]
  - Abdominal pain [Recovered/Resolved]
  - Pain in extremity [Unknown]
  - Pain [Unknown]
  - Neuropathy peripheral [Unknown]
  - Fatigue [Unknown]
  - Headache [Unknown]
  - Dyspepsia [Unknown]
  - Tendonitis [Unknown]
  - Cholecystectomy [Recovered/Resolved]
  - Cholelithiasis [Recovered/Resolved]
  - Erythema [Unknown]
  - Diarrhoea [Unknown]
  - Alanine aminotransferase increased [Recovered/Resolved]
  - Abdominal discomfort [Unknown]
  - Sinusitis [Unknown]

NARRATIVE: CASE EVENT DATE: 20161124
